FAERS Safety Report 10171882 (Version 1)
Quarter: 2014Q2

REPORT INFORMATION
  Report Type: Spontaneous
  Country: IT (occurrence: None)
  Receive Date: 20140512
  Receipt Date: 20140512
  Transmission Date: 20141212
  Serious: Yes (Life-Threatening)
  Sender: FDA-Public Use
  Company Number: 2014042485

PATIENT
  Age: 77 Year
  Sex: Male

DRUGS (2)
  1. DESMOPRESSIN ACETATE [Suspect]
     Dates: start: 20130101, end: 20140205
  2. PREDNISONE (PREDNISONE) [Concomitant]

REACTIONS (3)
  - Drop attacks [None]
  - Blister [None]
  - Haemorrhage [None]
